FAERS Safety Report 24098017 (Version 1)
Quarter: 2024Q3

REPORT INFORMATION
  Report Type: Spontaneous
  Country: AU (occurrence: None)
  Receive Date: 20240716
  Receipt Date: 20240716
  Transmission Date: 20241016
  Serious: No
  Sender: Public
  Company Number: None

PATIENT
  Age: 34 Year
  Sex: Female
  Weight: 75.7 kg

DRUGS (5)
  1. OZEMPIC [Suspect]
     Active Substance: SEMAGLUTIDE
     Indication: Weight decreased
     Dosage: OTHER FREQUENCY : ONCE A WEEK;?
     Dates: start: 20240426, end: 20240707
  2. EFFEXOR [Concomitant]
     Active Substance: VENLAFAXINE HYDROCHLORIDE
  3. ETHINYL ESTRADIOL\NORETHINDRONE [Concomitant]
     Active Substance: ETHINYL ESTRADIOL\NORETHINDRONE
  4. MELATONIN [Concomitant]
     Active Substance: MELATONIN
  5. Prebiotic/Probiotic [Concomitant]

REACTIONS (3)
  - Migraine [None]
  - Vomiting [None]
  - Adverse drug reaction [None]

NARRATIVE: CASE EVENT DATE: 20240426
